FAERS Safety Report 7841642-0 (Version None)
Quarter: 2011Q4

REPORT INFORMATION
  Report Type: 
  Country: None (occurrence: None)
  Receive Date: 20111024
  Receipt Date: 20111024
  Transmission Date: 20120403
  Serious: Yes (Other)
  Sender: FDA-Public Use
  Company Number: None

PATIENT
  Sex: Male
  Weight: 127.0072 kg

DRUGS (3)
  1. SPIRONOLACTONE 25MG TAB [Suspect]
     Indication: FLUID RETENTION
     Dosage: ONE TABLET EVERYDAY
     Dates: start: 20101101, end: 20110913
  2. SPIRONOLACTONE 25MG TAB [Suspect]
     Indication: CARDIAC DISORDER
     Dosage: ONE TABLET EVERYDAY
     Dates: start: 20101101, end: 20110913
  3. EVERY DAY DETOX HERBAL TEA - TRADITIONAL MEDICINAL LAX [Suspect]
     Dosage: 2 TO 3 CUPS TEA BAGS EVERY DAY 2008 0801101-FBEX 110308
     Dates: start: 20110601, end: 20110701

REACTIONS (3)
  - NIPPLE PAIN [None]
  - GYNAECOMASTIA [None]
  - BREAST DISCHARGE [None]
